FAERS Safety Report 15879559 (Version 1)
Quarter: 2019Q1

REPORT INFORMATION
  Report Type: Spontaneous
  Country: US (occurrence: US)
  Receive Date: 20190127
  Receipt Date: 20190127
  Transmission Date: 20190417
  Serious: Yes (Disabling)
  Sender: FDA-Public Use
  Company Number: None

PATIENT
  Age: 29 Year
  Sex: Female
  Weight: 58.5 kg

DRUGS (6)
  1. DULOXETINE. [Suspect]
     Active Substance: DULOXETINE
     Indication: DEPRESSION
     Dosage: ?          QUANTITY:1 CAPSULE(S);?
     Route: 048
     Dates: start: 20171101, end: 20180526
  2. FLAXSEED [Concomitant]
     Active Substance: FLAX SEED
  3. XANAX .5 MG [Concomitant]
  4. DULOXETINE. [Suspect]
     Active Substance: DULOXETINE
     Indication: PAIN
     Dosage: ?          QUANTITY:1 CAPSULE(S);?
     Route: 048
     Dates: start: 20171101, end: 20180526
  5. DAILY MULTIVITAMIN [Concomitant]
     Active Substance: VITAMINS
  6. DULOXETINE. [Suspect]
     Active Substance: DULOXETINE
     Indication: ANXIETY
     Dosage: ?          QUANTITY:1 CAPSULE(S);?
     Route: 048
     Dates: start: 20171101, end: 20180526

REACTIONS (20)
  - Sleep paralysis [None]
  - Blindness [None]
  - Condition aggravated [None]
  - Pain [None]
  - Suicidal ideation [None]
  - Withdrawal syndrome [None]
  - Chills [None]
  - Seizure [None]
  - Depression [None]
  - Insomnia [None]
  - Gastrointestinal disorder [None]
  - Anxiety [None]
  - Asthenia [None]
  - Mood swings [None]
  - Hallucination [None]
  - Psychotic disorder [None]
  - Paraesthesia [None]
  - Dizziness [None]
  - Presyncope [None]
  - Delusional perception [None]

NARRATIVE: CASE EVENT DATE: 20180501
